FAERS Safety Report 6878339-X (Version None)
Quarter: 2010Q3

REPORT INFORMATION
  Report Type: 
  Country: None (occurrence: None)
  Receive Date: 20100728
  Receipt Date: 20100719
  Transmission Date: 20110219
  Serious: Yes (Hospitalization)
  Sender: FDA-Public Use
  Company Number: FR-PFIZER INC-2010089557

PATIENT
  Age: 74 Year
  Sex: Male

DRUGS (5)
  1. AMLOR [Suspect]
     Dosage: UNK
     Route: 048
     Dates: start: 20100607
  2. PREVISCAN [Suspect]
     Indication: COAGULOPATHY
     Dosage: UNK
     Route: 048
     Dates: start: 20100611
  3. LASIX [Suspect]
     Dosage: UNK
     Route: 048
     Dates: start: 20100531
  4. PANTOPRAZOLE SODIUM [Suspect]
     Dosage: UNK
     Route: 048
     Dates: start: 20100526, end: 20100624
  5. RABEPRAZOLE SODIUM [Concomitant]
     Dosage: UNK
     Route: 048
     Dates: start: 20100624

REACTIONS (2)
  - PYREXIA [None]
  - TOXIC SKIN ERUPTION [None]
